FAERS Safety Report 7076545-5 (Version None)
Quarter: 2010Q4

REPORT INFORMATION
  Report Type: 
  Country: None (occurrence: None)
  Receive Date: 20101101
  Receipt Date: 20101020
  Transmission Date: 20110411
  Serious: Yes (Other)
  Sender: FDA-Public Use
  Company Number: US-PFIZER INC-2010133978

PATIENT
  Age: 40 Year
  Sex: Female

DRUGS (3)
  1. SERTRALINE HYDROCHLORIDE [Suspect]
     Indication: ANXIETY
     Dosage: UNK
  2. PAXIL [Suspect]
     Indication: ANXIETY
     Dosage: UNK
  3. RITALIN [Suspect]
     Dosage: UNK

REACTIONS (1)
  - CARCINOID TUMOUR OF THE GASTROINTESTINAL TRACT [None]
